FAERS Safety Report 21488963 (Version 1)
Quarter: 2022Q4

REPORT INFORMATION
  Report Type: Report from Study
  Country: IT (occurrence: IT)
  Receive Date: 20221021
  Receipt Date: 20221021
  Transmission Date: 20230113
  Serious: Yes (Other)
  Sender: FDA-Public Use
  Company Number: IT-CELLTRION INC.-2022IT016562

PATIENT

DRUGS (3)
  1. RITUXIMAB [Suspect]
     Active Substance: RITUXIMAB
     Indication: Retroperitoneal neoplasm
     Dosage: 580 MG IN 500 ML ENDOVENA/CICLICAL INFUSIONE E A 225 ML/H.
     Route: 042
     Dates: start: 20220811
  2. ACETAMINOPHEN [Concomitant]
     Active Substance: ACETAMINOPHEN
     Dosage: 1000 MG IN 100 ML DI FISIOLOGICA / CICLICA
     Route: 042
  3. HYDROCORTISONE [Concomitant]
     Active Substance: HYDROCORTISONE
     Dosage: 400 MG IN 100 ML / CICLICA
     Route: 042

REACTIONS (2)
  - Oropharyngeal pain [Recovered/Resolved]
  - Off label use [Unknown]

NARRATIVE: CASE EVENT DATE: 20220811
